FAERS Safety Report 6165630-8 (Version None)
Quarter: 2009Q2

REPORT INFORMATION
  Report Type: 
  Country: None (occurrence: None)
  Receive Date: 20090422
  Receipt Date: 20080923
  Transmission Date: 20091009
  Serious: Yes (Hospitalization)
  Sender: FDA-Public Use
  Company Number: 2008-184378-NL

PATIENT
  Age: 33 Year
  Sex: Female
  Weight: 65.8 kg

DRUGS (2)
  1. PUREGON [Suspect]
     Indication: INFERTILITY
     Dosage: 175 IU DAILY SUBCUTANEOUS
     Route: 058
     Dates: start: 20080701, end: 20080726
  2. CHORIONIC GONADOTROPIN [Suspect]
     Indication: OVULATION INDUCTION
     Dosage: 10000 IU
     Dates: start: 20080727

REACTIONS (1)
  - OVARIAN HYPERSTIMULATION SYNDROME [None]
